FAERS Safety Report 17174832 (Version 1)
Quarter: 2019Q4

REPORT INFORMATION
  Report Type: Spontaneous
  Country: US (occurrence: US)
  Receive Date: 20191218
  Receipt Date: 20191218
  Transmission Date: 20200122
  Serious: No
  Sender: FDA-Public Use
  Company Number: None

PATIENT
  Age: 58 Year
  Sex: Female
  Weight: 59.4 kg

DRUGS (6)
  1. VITAMIN D [Concomitant]
     Active Substance: VITAMIN D NOS
  2. OCREVUS [Suspect]
     Active Substance: OCRELIZUMAB
     Indication: MULTIPLE SCLEROSIS
     Dosage: ?          QUANTITY:1 INJECTION(S);OTHER FREQUENCY:EVERY 6 MONTHS;OTHER ROUTE:INFUSIONS?
  3. MULTIVITAMIN VITAMIN C [Concomitant]
  4. CALCIUM [Concomitant]
     Active Substance: CALCIUM
  5. TURMERIC [Concomitant]
     Active Substance: HERBALS\TURMERIC
  6. PROBIOTIC [Concomitant]
     Active Substance: PROBIOTICS NOS

REACTIONS (5)
  - Impaired healing [None]
  - Skin haemorrhage [None]
  - Joint swelling [None]
  - Peripheral swelling [None]
  - Skin tightness [None]

NARRATIVE: CASE EVENT DATE: 20190915
